FAERS Safety Report 25050174 (Version 2)
Quarter: 2025Q2

REPORT INFORMATION
  Report Type: Spontaneous
  Country: HU (occurrence: HU)
  Receive Date: 20250307
  Receipt Date: 20250424
  Transmission Date: 20250716
  Serious: Yes (Hospitalization, Other)
  Sender: BAYER HEALTHCARE PHARMACEUTICALS INC.
  Company Number: HU-BAYER-2025A027123

PATIENT
  Age: 30 Year
  Sex: Female

DRUGS (1)
  1. MIRENA [Suspect]
     Active Substance: LEVONORGESTREL
     Indication: Product used for unknown indication
     Dosage: 20?G/DAY
     Route: 015
     Dates: start: 20240702, end: 20250408

REACTIONS (15)
  - Vomiting [Not Recovered/Not Resolved]
  - Diarrhoea [Not Recovered/Not Resolved]
  - Dysstasia [Not Recovered/Not Resolved]
  - Abdominal pain lower [Not Recovered/Not Resolved]
  - Abnormal uterine bleeding [None]
  - Embedded device [None]
  - Polymenorrhoea [Not Recovered/Not Resolved]
  - Device dislocation [Recovered/Resolved]
  - Procedural pain [None]
  - Chills [None]
  - Heavy menstrual bleeding [None]
  - Heavy menstrual bleeding [None]
  - Complication of device removal [None]
  - Post procedural discharge [None]
  - Vaginal haemorrhage [None]

NARRATIVE: CASE EVENT DATE: 20240702
